FAERS Safety Report 14346924 (Version 3)
Quarter: 2018Q1

REPORT INFORMATION
  Report Type: Spontaneous
  Country: BE (occurrence: BE)
  Receive Date: 20180103
  Receipt Date: 20180326
  Transmission Date: 20180509
  Serious: Yes (Hospitalization, Other)
  Sender: FDA-Public Use
  Company Number: BE-PFIZER INC-2017552256

PATIENT
  Age: 43 Year
  Sex: Male

DRUGS (37)
  1. ETOPOSIDE. [Suspect]
     Active Substance: ETOPOSIDE
     Indication: DIFFUSE LARGE B-CELL LYMPHOMA
  2. GEMCITABINE HYDROCHLORIDE. [Suspect]
     Active Substance: GEMCITABINE HYDROCHLORIDE
     Indication: DIFFUSE LARGE B-CELL LYMPHOMA RECURRENT
  3. VANCOMYCIN HCL [Suspect]
     Active Substance: VANCOMYCIN HYDROCHLORIDE
     Indication: DEVICE RELATED INFECTION
  4. ENDOXAN /00021102/ [Suspect]
     Active Substance: CYCLOPHOSPHAMIDE
     Indication: DIFFUSE LARGE B-CELL LYMPHOMA STAGE III
     Dosage: 1000 MG, UNK, 8 CYCLES (R-CHOP)
     Dates: start: 201205
  5. LINEZOLID. [Concomitant]
     Active Substance: LINEZOLID
     Indication: DEVICE RELATED INFECTION
  6. CELLTOP [Suspect]
     Active Substance: ETOPOSIDE
     Indication: MALIGNANT NEOPLASM PROGRESSION
     Dosage: 50 MG, UNK (ICE REGIMEN)
     Dates: start: 201412
  7. CARMUSTINE [Suspect]
     Active Substance: CARMUSTINE
     Indication: STEM CELL TRANSPLANT
     Dosage: UNK (BEAM REGIMEN)
     Dates: start: 201412
  8. CELLTOP [Suspect]
     Active Substance: ETOPOSIDE
     Indication: BONE MARROW CONDITIONING REGIMEN
     Dosage: 50 MG, UNK, ICE-REGIMEN
     Dates: start: 201412
  9. COPANLISIB [Suspect]
     Active Substance: COPANLISIB
     Indication: DIFFUSE LARGE B-CELL LYMPHOMA RECURRENT
     Dosage: UNK
  10. ENDOXAN /00021102/ [Suspect]
     Active Substance: CYCLOPHOSPHAMIDE
     Indication: DIFFUSE LARGE B-CELL LYMPHOMA REFRACTORY
  11. DOXORUBICIN HCL [Suspect]
     Active Substance: DOXORUBICIN HYDROCHLORIDE
     Indication: DIFFUSE LARGE B-CELL LYMPHOMA STAGE III
  12. BENDAMUSTINE HYDROCHLORIDE. [Suspect]
     Active Substance: BENDAMUSTINE HYDROCHLORIDE
     Indication: DIFFUSE LARGE B-CELL LYMPHOMA RECURRENT
  13. BLINATUMOMAB [Suspect]
     Active Substance: BLINATUMOMAB
     Indication: DIFFUSE LARGE B-CELL LYMPHOMA RECURRENT
     Dosage: 9 UG, 1X/DAY, CONTINUOUS INFUSION 96H
     Dates: start: 20161229, end: 20170104
  14. BLINATUMOMAB [Suspect]
     Active Substance: BLINATUMOMAB
     Dosage: UNK (96 HOUR)
     Route: 041
     Dates: start: 2016
  15. CARMUSTINE [Suspect]
     Active Substance: CARMUSTINE
     Indication: BONE MARROW CONDITIONING REGIMEN
  16. HOLOXAN [Suspect]
     Active Substance: IFOSFAMIDE
     Indication: DIFFUSE LARGE B-CELL LYMPHOMA REFRACTORY
     Dosage: UNK (ICE-REGIMEN)
     Dates: start: 2014
  17. IFOSFAMIDE. [Suspect]
     Active Substance: IFOSFAMIDE
     Indication: DIFFUSE LARGE B-CELL LYMPHOMA
     Dosage: UNK
     Dates: start: 2014
  18. MELPHALAN. [Suspect]
     Active Substance: MELPHALAN
     Indication: STEM CELL TRANSPLANT
     Dosage: UNK (BEAM REGIMEN)
     Dates: start: 201412
  19. PREDNISONE. [Suspect]
     Active Substance: PREDNISONE
     Indication: DIFFUSE LARGE B-CELL LYMPHOMA RECURRENT
     Dosage: UNK (R-CHOP REGIMEN (AT SECOND RELAPSE))
     Dates: start: 201205
  20. RITUXIMAB. [Suspect]
     Active Substance: RITUXIMAB
     Indication: B-CELL LYMPHOMA
     Dosage: RITUXIMAB-BENDAMUSTIN
     Dates: start: 201205
  21. RITUXIMAB. [Suspect]
     Active Substance: RITUXIMAB
     Indication: DIFFUSE LARGE B-CELL LYMPHOMA STAGE III
     Dosage: R-CHOP (SECOND TIME RELAPSE)
     Dates: start: 2013
  22. LINEZOLID. [Concomitant]
     Active Substance: LINEZOLID
     Indication: STAPHYLOCOCCAL INFECTION
     Dosage: UNK
  23. CARBOPLATIN. [Suspect]
     Active Substance: CARBOPLATIN
     Indication: DIFFUSE LARGE B-CELL LYMPHOMA REFRACTORY
     Dosage: UNK (ICE REGIMEN)
     Dates: start: 2014
  24. ETOPOSIDE. [Suspect]
     Active Substance: ETOPOSIDE
     Indication: STEM CELL TRANSPLANT
     Dosage: UNK
     Dates: start: 2014
  25. OXALIPLATIN. [Suspect]
     Active Substance: OXALIPLATIN
     Indication: DIFFUSE LARGE B-CELL LYMPHOMA RECURRENT
  26. BLINATUMOMAB [Suspect]
     Active Substance: BLINATUMOMAB
     Dosage: 112 UG, 1X/DAY, SECOND ESCALATION TO THE FINAL DOSE OF 112G PER DAY ANOTHER WEEK THEREAFTER
     Route: 065
     Dates: start: 20170104, end: 20170308
  27. HOLOXAN [Suspect]
     Active Substance: IFOSFAMIDE
     Indication: MALIGNANT NEOPLASM PROGRESSION
  28. CARBOPLATIN. [Suspect]
     Active Substance: CARBOPLATIN
     Indication: MALIGNANT NEOPLASM PROGRESSION
  29. CYTARABINE. [Suspect]
     Active Substance: CYTARABINE
     Indication: STEM CELL TRANSPLANT
     Dosage: UNK (BEAM REGIMEN)
     Dates: start: 201412
  30. CYCLOPHOSPHAMIDE. [Suspect]
     Active Substance: CYCLOPHOSPHAMIDE
     Indication: DIFFUSE LARGE B-CELL LYMPHOMA
     Dosage: UNK
     Dates: start: 201205
  31. VANCOMYCIN HCL [Suspect]
     Active Substance: VANCOMYCIN HYDROCHLORIDE
     Indication: STAPHYLOCOCCAL INFECTION
  32. VINCRISTINE SULFATE. [Suspect]
     Active Substance: VINCRISTINE SULFATE
     Indication: DIFFUSE LARGE B-CELL LYMPHOMA
     Dosage: R-CHOP REGIMEN AT SECOND RELAPSE
  33. BLINATUMOMAB [Suspect]
     Active Substance: BLINATUMOMAB
     Dosage: 28 UG, 1X/DAY, CONTINUOUS INFUSION (TREATMENT CONTINUED FOR A TOTAL OF 56 DAYS)
     Route: 065
     Dates: start: 20170105, end: 20170111
  34. DEXAMETHASONE. [Suspect]
     Active Substance: DEXAMETHASONE
     Indication: PROPHYLAXIS
     Dosage: 20 MG, UNK (BEFORE EACH DOSE INCREASE WAS PERFORMED ACCORDING TO LIMITED EVIDENCE)
     Dates: start: 2016
  35. VINCRISTINE [Suspect]
     Active Substance: VINCRISTINE
     Indication: DIFFUSE LARGE B-CELL LYMPHOMA REFRACTORY
     Dosage: UNK UNK, CYCLIC ((R-CHOP REGIMEN)
     Dates: start: 201205
  36. DOXORUBICIN HCL [Suspect]
     Active Substance: DOXORUBICIN HYDROCHLORIDE
     Indication: DIFFUSE LARGE B-CELL LYMPHOMA REFRACTORY
     Dosage: UNK, CYCLIC (8 CYCLES (R-CHOP REGIMEN))
     Dates: start: 201205
  37. MELPHALAN. [Suspect]
     Active Substance: MELPHALAN
     Indication: BONE MARROW CONDITIONING REGIMEN

REACTIONS (10)
  - Tubulointerstitial nephritis [Unknown]
  - End stage renal disease [Unknown]
  - Neoplasm progression [Recovered/Resolved]
  - Staphylococcal infection [Unknown]
  - Cytopenia [Recovered/Resolved]
  - Pyrexia [Unknown]
  - Glomerular filtration rate decreased [Unknown]
  - Neutropenic sepsis [Unknown]
  - Device related infection [Unknown]
  - Renal impairment [Unknown]
